FAERS Safety Report 5494442-3 (Version None)
Quarter: 2007Q4

REPORT INFORMATION
  Report Type: 
  Country: None (occurrence: None)
  Receive Date: 20071022
  Receipt Date: 20071022
  Transmission Date: 20080405
  Serious: Yes (Death)
  Sender: FDA-Public Use
  Company Number: None

PATIENT
  Age: 73 Year
  Sex: Female
  Weight: 95.2554 kg

DRUGS (1)
  1. AMIODARONE HCL [Suspect]
     Indication: ATRIAL FIBRILLATION
     Dosage: 400 MG DAILY PO
     Route: 048
     Dates: start: 20060426, end: 20070911

REACTIONS (2)
  - LUNG DISORDER [None]
  - THERAPEUTIC AGENT TOXICITY [None]
